FAERS Safety Report 4588337-7 (Version None)
Quarter: 2005Q1

REPORT INFORMATION
  Report Type: 
  Country: None (occurrence: None)
  Receive Date: 20050215
  Receipt Date: 20050215
  Transmission Date: 20050727
  Serious: No
  Sender: FDA-Public Use
  Company Number: None

PATIENT
  Age: 69 Year
  Sex: Female
  Weight: 102.5129 kg

DRUGS (1)
  1. TAXOL [Suspect]
     Indication: BREAST CANCER
     Dosage: 222 MG/ WKLY / IV
     Route: 042
     Dates: start: 20041014, end: 20050209

REACTIONS (3)
  - DYSPNOEA [None]
  - FLUSHING [None]
  - SINUS CONGESTION [None]
